FAERS Safety Report 18733168 (Version 1)
Quarter: 2021Q1

REPORT INFORMATION
  Report Type: Spontaneous
  Country: US (occurrence: US)
  Receive Date: 20210113
  Receipt Date: 20210113
  Transmission Date: 20210419
  Serious: Yes (Other)
  Sender: FDA-Public Use
  Company Number: US-AUROBINDO-AUR-APL-2021-001093

PATIENT
  Age: 60 Year
  Sex: Female

DRUGS (8)
  1. VANCOMYCIN INJECTION [Suspect]
     Active Substance: VANCOMYCIN
     Indication: LEUKOCYTOSIS
     Dosage: UNK
     Route: 042
  2. FIDAXOMICIN [Suspect]
     Active Substance: FIDAXOMICIN
     Indication: CLOSTRIDIUM DIFFICILE COLITIS
     Dosage: UNK
     Route: 065
  3. CYCLOPHOSPHAMIDE. [Concomitant]
     Active Substance: CYCLOPHOSPHAMIDE
     Indication: PRIMARY AMYLOIDOSIS
     Dosage: 260 MILLIGRAM, EVERY WEEK
     Route: 042
  4. DEXAMETHASONE. [Concomitant]
     Active Substance: DEXAMETHASONE
     Indication: PRIMARY AMYLOIDOSIS
     Dosage: 40 MILLIGRAM, EVERY WEEK
     Route: 048
  5. CEFEPIME [Suspect]
     Active Substance: CEFEPIME HYDROCHLORIDE
     Indication: LEUKOCYTOSIS
     Dosage: UNK
     Route: 042
  6. BORTEZOMIB. [Concomitant]
     Active Substance: BORTEZOMIB
     Indication: PRIMARY AMYLOIDOSIS
     Dosage: 2.6 MILLIGRAM, EVERY WEEK (1.3 MG/M2/DOSE)
     Route: 058
  7. VANCOMYCIN [Suspect]
     Active Substance: VANCOMYCIN
     Indication: CLOSTRIDIUM DIFFICILE COLITIS
     Dosage: 125 MILLIGRAM, FOUR TIMES/DAY
     Route: 048
  8. METRONIDAZOLE. [Suspect]
     Active Substance: METRONIDAZOLE
     Indication: CLOSTRIDIUM DIFFICILE COLITIS
     Dosage: 500 MILLIGRAM, 3 TIMES A DAY
     Route: 042

REACTIONS (1)
  - Drug ineffective [Unknown]
